FAERS Safety Report 20345334 (Version 2)
Quarter: 2022Q1

REPORT INFORMATION
  Report Type: Spontaneous
  Country: US (occurrence: US)
  Receive Date: 20220118
  Receipt Date: 20220131
  Transmission Date: 20220424
  Serious: No
  Sender: FDA-Public Use
  Company Number: US-BAUSCH-BL-2022-001120

PATIENT
  Sex: Male

DRUGS (1)
  1. FLUNISOLIDE [Suspect]
     Active Substance: FLUNISOLIDE
     Indication: Product used for unknown indication
     Route: 045

REACTIONS (3)
  - Application site injury [Unknown]
  - Epistaxis [Unknown]
  - Packaging design issue [Unknown]
